FAERS Safety Report 7301199-X (Version None)
Quarter: 2011Q1

REPORT INFORMATION
  Report Type: 
  Country: None (occurrence: None)
  Receive Date: 20110112
  Receipt Date: 20090325
  Transmission Date: 20110831
  Serious: Yes (Hospitalization)
  Sender: FDA-Public Use
  Company Number: THYM-1000981

PATIENT
  Age: 31 Year
  Sex: Female

DRUGS (4)
  1. THYMOGLOBULIN [Suspect]
     Indication: RENAL TRANSPLANT
     Dosage: 125 MG, QD, INTRAVENOUS
     Route: 042
     Dates: start: 20090309, end: 20090311
  2. CELLCEPT [Concomitant]
  3. PROGRAF [Concomitant]
  4. PREDNISONE TAB [Concomitant]

REACTIONS (1)
  - SERUM SICKNESS [None]
